FAERS Safety Report 5372457-3 (Version None)
Quarter: 2007Q2

REPORT INFORMATION
  Report Type: 
  Country: None (occurrence: None)
  Receive Date: 20070625
  Receipt Date: 20070611
  Transmission Date: 20071010
  Serious: Yes (Other)
  Sender: FDA-Public Use
  Company Number: 200705005

PATIENT
  Age: 64 Year
  Sex: Male
  Weight: 79.8331 kg

DRUGS (3)
  1. TESTIM [Suspect]
     Indication: HYPOGONADISM
     Dosage: 50 MG, DAILY, TRANSDERMAL
     Route: 062
     Dates: start: 20060921, end: 20070416
  2. TESTIM [Suspect]
  3. LEVOXYL [Concomitant]

REACTIONS (1)
  - PROSTATE CANCER [None]
